FAERS Safety Report 16277612 (Version 3)
Quarter: 2019Q2

REPORT INFORMATION
  Report Type: Spontaneous
  Country: US (occurrence: US)
  Receive Date: 20190506
  Receipt Date: 20190611
  Transmission Date: 20190711
  Serious: No
  Sender: FDA-Public Use
  Company Number: US-PFIZER INC-2019189818

PATIENT
  Age: 47 Year
  Sex: Female
  Weight: 71 kg

DRUGS (7)
  1. NEUPOGEN [Concomitant]
     Active Substance: FILGRASTIM
     Dosage: UNK, (THREE DAILY SHOT TWO OF ZARXIO, ONE OF NEUPOGEN)
  2. IBRANCE [Suspect]
     Active Substance: PALBOCICLIB
     Indication: BREAST CANCER METASTATIC
     Dosage: 125 MG, CYCLIC [I HAVE A PILL FOR TOMORROW AND THEN I GO ON MY 7 DAYS OFF^]
     Route: 048
  3. LETROZOLE. [Concomitant]
     Active Substance: LETROZOLE
     Dosage: 2.5 MG, 1X/DAY
     Route: 048
  4. VITAMIN B12 [Concomitant]
     Active Substance: CYANOCOBALAMIN
     Dosage: UNK
  5. ZARXIO [Concomitant]
     Active Substance: FILGRASTIM-SNDZ
     Dosage: UNK
  6. CETRIZINE [Concomitant]
     Active Substance: CETIRIZINE HYDROCHLORIDE
     Indication: HYPERSENSITIVITY
     Dosage: UNK
  7. VITAMIN C [Concomitant]
     Active Substance: ASCORBIC ACID
     Dosage: UNK

REACTIONS (2)
  - White blood cell count decreased [Unknown]
  - Full blood count decreased [Unknown]
